FAERS Safety Report 7158368-1 (Version None)
Quarter: 2010Q4

REPORT INFORMATION
  Report Type: 
  Country: None (occurrence: None)
  Receive Date: 20101214
  Receipt Date: 20100301
  Transmission Date: 20110411
  Serious: Yes (Other)
  Sender: FDA-Public Use
  Company Number: US-PFIZER INC-2010027063

PATIENT
  Sex: Male
  Weight: 74.83 kg

DRUGS (3)
  1. ARTHROTEC [Suspect]
     Indication: ARTHRITIS
     Dosage: 200 MG, 2X/DAY
     Route: 048
     Dates: start: 20100220
  2. METHOTREXATE [Concomitant]
     Dosage: UNK
  3. PLAQUENIL [Concomitant]
     Dosage: UNK

REACTIONS (3)
  - DRUG INEFFECTIVE [None]
  - GAIT DISTURBANCE [None]
  - JOINT SWELLING [None]
